FAERS Safety Report 8138272-2 (Version None)
Quarter: 2012Q1

REPORT INFORMATION
  Report Type: 
  Country: None (occurrence: None)
  Receive Date: 20120215
  Receipt Date: 20120214
  Transmission Date: 20120608
  Serious: Yes (Other)
  Sender: FDA-Public Use
  Company Number: GB-JNJFOC-20110907596

PATIENT
  Age: 21 Year
  Sex: Female

DRUGS (4)
  1. CETIRIZINE HCL [Suspect]
     Indication: SWELLING
     Dosage: 1 TABLET A DAY
     Route: 048
     Dates: start: 20061116, end: 20110620
  2. CETIRIZINE HCL [Suspect]
     Indication: HYPERSENSITIVITY
     Dosage: 1 TABLET A DAY
     Route: 048
     Dates: start: 20061116, end: 20110620
  3. LAMICTAL [Concomitant]
     Indication: PRODUCT USED FOR UNKNOWN INDICATION
     Route: 065
  4. TERBUTALINE [Concomitant]
     Indication: ASTHMA
     Dosage: AS NECESSARY
     Route: 055
     Dates: start: 19970101, end: 20110830

REACTIONS (3)
  - COMPLEX PARTIAL SEIZURES [None]
  - OFF LABEL USE [None]
  - EPILEPSY [None]
